FAERS Safety Report 7083504-5 (Version None)
Quarter: 2010Q4

REPORT INFORMATION
  Report Type: 
  Country: None (occurrence: None)
  Receive Date: 20101027
  Receipt Date: 20101014
  Transmission Date: 20110411
  Serious: Yes (Other)
  Sender: FDA-Public Use
  Company Number: 2010MA003722

PATIENT
  Sex: Female

DRUGS (1)
  1. GABAPENTIN [Suspect]
     Indication: POST HERPETIC NEURALGIA
     Dosage: 1200 MG; QD;

REACTIONS (4)
  - DIALYSIS [None]
  - DIARRHOEA [None]
  - MULTIPLE MYELOMA [None]
  - RENAL FAILURE [None]
